FAERS Safety Report 5103489-8 (Version None)
Quarter: 2006Q3

REPORT INFORMATION
  Report Type: 
  Country: None (occurrence: None)
  Receive Date: 20060731
  Receipt Date: 20060502
  Transmission Date: 20061208
  Serious: Yes (Other)
  Sender: FDA-Public Use
  Company Number: US-JNJFOC-20051204218

PATIENT
  Age: 71 Year
  Sex: Female
  Weight: 97.0698 kg

DRUGS (3)
  1. RISPERDAL CONSTA [Suspect]
     Indication: BIPOLAR DISORDER
     Dosage: 50 MG, 1 IN 2 MONTH; SEE IMAGE
     Dates: start: 20040501
  2. RISPERDAL CONSTA [Suspect]
     Indication: SCHIZOPHRENIA
     Dosage: 50 MG, 1 IN 2 MONTH; SEE IMAGE
     Dates: start: 20040501
  3. RISPERDAL [Suspect]
     Indication: SCHIZOPHRENIA
     Dosage: 2 MG/DAY BUT ALSO TAKES SOME AS NECESSARY

REACTIONS (5)
  - ASTHENIA [None]
  - BREAST SWELLING [None]
  - TARDIVE DYSKINESIA [None]
  - TREMOR [None]
  - VISUAL DISTURBANCE [None]
